FAERS Safety Report 13549574 (Version 3)
Quarter: 2017Q3

REPORT INFORMATION
  Report Type: Spontaneous
  Country: US (occurrence: US)
  Receive Date: 20170516
  Receipt Date: 20170704
  Transmission Date: 20171127
  Serious: Yes (Hospitalization, Other)
  Sender: FDA-Public Use
  Company Number: PHEH2017US014033

PATIENT
  Sex: Male

DRUGS (2)
  1. AFINITOR [Suspect]
     Active Substance: EVEROLIMUS
     Indication: RENAL CANCER
     Dosage: 5 MG, QD
     Route: 048
     Dates: start: 20170215, end: 20170623
  2. LENVIMA [Suspect]
     Active Substance: LENVATINIB
     Indication: RENAL CANCER
     Dosage: 18 MG, QD
     Route: 048
     Dates: start: 20170215, end: 20170623

REACTIONS (10)
  - Pain [Not Recovered/Not Resolved]
  - Epistaxis [Unknown]
  - Dyspnoea [Unknown]
  - Hepatotoxicity [Unknown]
  - Thrombosis [Unknown]
  - Vomiting [Unknown]
  - Neoplasm malignant [Not Recovered/Not Resolved]
  - Nausea [Not Recovered/Not Resolved]
  - Yellow skin [Unknown]
  - Chest pain [Not Recovered/Not Resolved]
